FAERS Safety Report 7265805-0 (Version None)
Quarter: 2011Q1

REPORT INFORMATION
  Report Type: 
  Country: None (occurrence: None)
  Receive Date: 20110131
  Receipt Date: 20110124
  Transmission Date: 20110831
  Serious: Yes (Death, Hospitalization)
  Sender: FDA-Public Use
  Company Number: A0789870A

PATIENT
  Age: 68 Year
  Sex: Female

DRUGS (9)
  1. SPIRIVA [Concomitant]
  2. LISINOPRIL [Concomitant]
  3. ASPIRIN [Concomitant]
  4. TOPROL-XL [Concomitant]
  5. FLOVENT [Concomitant]
  6. ZETIA [Concomitant]
  7. NORVASC [Concomitant]
  8. MINOXIDIL [Concomitant]
  9. AVANDIA [Suspect]
     Indication: TYPE 2 DIABETES MELLITUS
     Dosage: 4MG PER DAY
     Route: 048
     Dates: start: 20050207, end: 20061210

REACTIONS (3)
  - HYPERTENSION [None]
  - CARDIAC ARREST [None]
  - CORONARY ARTERY DISEASE [None]
